FAERS Safety Report 17441115 (Version 12)
Quarter: 2020Q3

REPORT INFORMATION
  Report Type: Report from Study
  Country: ES (occurrence: ES)
  Receive Date: 20200220
  Receipt Date: 20200715
  Transmission Date: 20201102
  Serious: Yes (Death, Hospitalization)
  Sender: FDA-Public Use
  Company Number: ES-EISAI MEDICAL RESEARCH-EC-2020-070369

PATIENT
  Age: 74 Year
  Sex: Male
  Weight: 90.6 kg

DRUGS (28)
  1. LENVATINIB [Suspect]
     Active Substance: LENVATINIB
     Route: 048
     Dates: start: 20200220, end: 20200308
  2. CIPROFLOXACIN. [Concomitant]
     Active Substance: CIPROFLOXACIN
     Dates: start: 20200124, end: 20200204
  3. METFORMIN [Concomitant]
     Active Substance: METFORMIN HYDROCHLORIDE
     Dates: start: 20200129
  4. APIDRA [Concomitant]
     Active Substance: INSULIN GLULISINE
     Route: 058
     Dates: start: 20200129
  5. LOSARTAN POTASSIUM. [Concomitant]
     Active Substance: LOSARTAN POTASSIUM
     Dates: start: 20200129
  6. SPIOLTO RESPIMAT [Concomitant]
     Active Substance: OLODATEROL HYDROCHLORIDE\TIOTROPIUM BROMIDE MONOHYDRATE
     Dates: start: 20200129
  7. PEMBROLIZUMAB. [Suspect]
     Active Substance: PEMBROLIZUMAB
     Route: 041
     Dates: start: 20200220, end: 20200220
  8. OMEPRAZOLE. [Concomitant]
     Active Substance: OMEPRAZOLE
     Dates: start: 201911
  9. FUROSEMIDE. [Concomitant]
     Active Substance: FUROSEMIDE
     Dates: start: 20200121
  10. ALBUTEROL. [Concomitant]
     Active Substance: ALBUTEROL
     Dates: start: 20200129
  11. TAMSULOSIN HYDROCHLORIDE. [Concomitant]
     Active Substance: TAMSULOSIN HYDROCHLORIDE
     Dates: start: 20200127
  12. PEMBROLIZUMAB. [Suspect]
     Active Substance: PEMBROLIZUMAB
     Indication: HEPATOCELLULAR CARCINOMA
     Route: 041
     Dates: start: 20191216, end: 20200109
  13. SALMETEROL [Concomitant]
     Active Substance: SALMETEROL
     Dates: start: 20200129, end: 20200213
  14. LIRAGLUTIDE [Concomitant]
     Active Substance: LIRAGLUTIDE
     Dates: start: 20200129
  15. LENVATINIB [Suspect]
     Active Substance: LENVATINIB
     Indication: HEPATOCELLULAR CARCINOMA
     Route: 048
     Dates: start: 20191216, end: 20200211
  16. LEVOTHYROXINE SODIUM. [Concomitant]
     Active Substance: LEVOTHYROXINE SODIUM
     Dates: start: 20200109
  17. IPRATROPIUM BROMIDE. [Concomitant]
     Active Substance: IPRATROPIUM BROMIDE
     Dates: start: 20200124
  18. ATORVASTATIN CALCIUM. [Concomitant]
     Active Substance: ATORVASTATIN CALCIUM
     Dates: start: 20200129
  19. CORONUR [Concomitant]
     Active Substance: ISOSORBIDE MONONITRATE
     Dates: start: 20200129, end: 20200211
  20. CITALOPRAM [Concomitant]
     Active Substance: CITALOPRAM HYDROBROMIDE
     Dates: start: 20200129
  21. HYDROCHLOROTHIAZIDE. [Concomitant]
     Active Substance: HYDROCHLOROTHIAZIDE
     Dates: start: 20200129
  22. ENOXAPARIN SODIUM. [Concomitant]
     Active Substance: ENOXAPARIN SODIUM
     Route: 058
     Dates: start: 20200114
  23. PEMBROLIZUMAB. [Suspect]
     Active Substance: PEMBROLIZUMAB
     Route: 041
     Dates: start: 20200127, end: 20200127
  24. GLUCAGON. [Concomitant]
     Active Substance: GLUCAGON
     Dates: start: 20200129
  25. NOVOMIX [Concomitant]
     Active Substance: INSULIN ASPART
     Route: 058
     Dates: start: 20200129
  26. ASPIRIN. [Concomitant]
     Active Substance: ASPIRIN
     Dates: start: 20200127, end: 20200211
  27. BISOPROLOL [Concomitant]
     Active Substance: BISOPROLOL
     Dates: start: 201501
  28. BECLOMETHASONE DIPROPIONATE [Concomitant]
     Active Substance: BECLOMETHASONE DIPROPIONATE
     Dates: start: 20200129

REACTIONS (1)
  - Hepatic encephalopathy [Recovered/Resolved]

NARRATIVE: CASE EVENT DATE: 20200212
